FAERS Safety Report 23582602 (Version 2)
Quarter: 2024Q1

REPORT INFORMATION
  Report Type: Report from Study
  Country: EG (occurrence: EG)
  Receive Date: 20240229
  Receipt Date: 20240306
  Transmission Date: 20240409
  Serious: No
  Sender: FDA-Public Use
  Company Number: EG-SANDOZ-SDZ2024EG021116

PATIENT
  Age: 8 Year
  Sex: Female

DRUGS (5)
  1. OMNITROPE [Suspect]
     Active Substance: SOMATROPIN
     Indication: Growth hormone deficiency
     Dosage: 0.7 MG/ DAY
     Route: 058
     Dates: start: 20240127
  2. ECHINACEA ANGUSTIFOLIA\HERBALS [Concomitant]
     Active Substance: ECHINACEA ANGUSTIFOLIA\HERBALS
     Indication: Immunodeficiency
     Dosage: UNK
     Route: 048
  3. FEXOFENADINE [Concomitant]
     Active Substance: FEXOFENADINE HYDROCHLORIDE
     Indication: Nasopharyngitis
     Dosage: UNK
     Route: 048
  4. VENTOLIN [Concomitant]
     Active Substance: ALBUTEROL SULFATE
     Indication: Bronchospasm
     Dosage: UNK UNK, Q8H
     Route: 048
  5. ZYRTEC [Concomitant]
     Active Substance: CETIRIZINE HYDROCHLORIDE
     Indication: Nasopharyngitis
     Dosage: UNK
     Route: 048

REACTIONS (5)
  - Injection site haemorrhage [Recovered/Resolved]
  - Product dispensing issue [Unknown]
  - Needle issue [Unknown]
  - Product storage error [Unknown]
  - Multiple use of single-use product [Unknown]

NARRATIVE: CASE EVENT DATE: 20240127
